FAERS Safety Report 7013049-X (Version None)
Quarter: 2010Q3

REPORT INFORMATION
  Report Type: 
  Country: None (occurrence: None)
  Receive Date: 20100909
  Receipt Date: 20100528
  Transmission Date: 20110219
  Serious: Yes (Hospitalization, Disabling)
  Sender: FDA-Public Use
  Company Number: 2010SP030874

PATIENT
  Age: 51 Year
  Sex: Male
  Weight: 54.4316 kg

DRUGS (1)
  1. SAPHRIS [Suspect]
     Indication: SCHIZOPHRENIA
     Dosage: SL
     Route: 060
     Dates: end: 20100501

REACTIONS (3)
  - MUSCLE RIGIDITY [None]
  - PSYCHOMOTOR SKILLS IMPAIRED [None]
  - TARDIVE DYSKINESIA [None]
